FAERS Safety Report 16886970 (Version 1)
Quarter: 2019Q4

REPORT INFORMATION
  Report Type: Spontaneous
  Country: US (occurrence: US)
  Receive Date: 20191004
  Receipt Date: 20191004
  Transmission Date: 20200122
  Serious: Yes (Other)
  Sender: FDA-Public Use
  Company Number: US-BAUSCH-BL-2019-055161

PATIENT
  Age: 52 Year
  Sex: Female
  Weight: 104.42 kg

DRUGS (2)
  1. HYDROCORTISONE ENEMAS [Concomitant]
     Indication: COLITIS ULCERATIVE
     Dosage: APPROXIMATELY ONE WEEK BEFORE STARTING ON APRISO AND COMPLETED A 2-WEEK COURSE
     Route: 065
     Dates: start: 2019, end: 201908
  2. APRISO [Suspect]
     Active Substance: MESALAMINE
     Indication: COLITIS ULCERATIVE
     Dosage: 4 CAPSULES
     Route: 048
     Dates: start: 201908

REACTIONS (1)
  - Drug ineffective [Unknown]

NARRATIVE: CASE EVENT DATE: 201908
